FAERS Safety Report 9209710 (Version 1)
Quarter: 2013Q1

REPORT INFORMATION
  Report Type: Spontaneous
  Country: US (occurrence: None)
  Receive Date: 20120820
  Receipt Date: 20120820
  Transmission Date: 20140127
  Serious: No
  Sender: FDA-Public Use
  Company Number: 1000030043

PATIENT
  Age: 41 Year
  Sex: Female

DRUGS (1)
  1. VIIBRYD [Suspect]
     Indication: STRESS
     Dosage: 10 MG (10 MG, 1 IN 1 D), ORAL
     Route: 048
     Dates: start: 201203, end: 2012

REACTIONS (4)
  - Insomnia [None]
  - Abnormal dreams [None]
  - Panic attack [None]
  - Off label use [None]
